FAERS Safety Report 7549656-5 (Version None)
Quarter: 2011Q2

REPORT INFORMATION
  Report Type: 
  Country: None (occurrence: None)
  Receive Date: 20110615
  Receipt Date: 20110608
  Transmission Date: 20111010
  Serious: Yes (Other)
  Sender: FDA-Public Use
  Company Number: US-ALEXION-A201100588

PATIENT
  Sex: Male

DRUGS (23)
  1. CYCLOSPORINE [Concomitant]
     Dosage: 400 MG, AC PM
     Route: 048
     Dates: end: 20100609
  2. KLACKS [Concomitant]
     Dosage: UNK
  3. CITALOPRAM HYDROBROMIDE [Concomitant]
     Dosage: 20 MG, QD
     Route: 048
     Dates: start: 20110301
  4. LEVOXYL [Concomitant]
     Dosage: 125 UG, QD
  5. CYCLOSPORINE [Concomitant]
     Dosage: 200 MG, QD
     Dates: end: 20100805
  6. CIPROFLOXACIN HCL [Concomitant]
     Dosage: 500 MG, BID
  7. CLONAZEPAM [Concomitant]
     Dosage: 0.5 MG, QD
     Route: 048
  8. EXJADE [Concomitant]
     Dosage: 500 MG (SOLUBLE TABLET), QD
     Route: 048
  9. NEXIUM [Concomitant]
     Dosage: 20 MG (DELAYED RELEASE), QD
  10. DOXYCYCLINE HYCLATE [Concomitant]
     Dosage: 100 MG, BID (1 TABLET Q 12 HOURS)
     Dates: end: 20100607
  11. DOXYCYCLINE HYCLATE [Concomitant]
     Dosage: UNK
     Dates: end: 20100622
  12. FAMVIR [Concomitant]
     Dosage: TAKE AS DIRECTED
     Route: 048
     Dates: end: 20100805
  13. EXJADE [Concomitant]
     Dosage: 500 MG, QD
     Dates: end: 20100805
  14. SOLIRIS [Suspect]
     Indication: PAROXYSMAL NOCTURNAL HAEMOGLOBINURIA
     Dosage: UNK
     Route: 042
  15. LIPITOR [Suspect]
  16. COSOPT [Concomitant]
     Dosage: UNK
  17. DESONIDE [Concomitant]
     Dosage: APPLY 1 TOPICAL, PRN
     Route: 061
     Dates: start: 20110301
  18. IMIQUIMOD [Concomitant]
     Dosage: APPLY 5% TOPICAL Q 2 DAYS
     Route: 061
  19. XALATAN [Concomitant]
     Dosage: 1 AT BEDTIME
  20. ALPHAGAN P [Concomitant]
     Dosage: UNK
  21. DIFLUCAN [Concomitant]
     Dosage: 100 MG, QD
  22. VITAMIN D [Concomitant]
     Dosage: 50000 IU, Q 4 WEEKS
  23. PREDNISONE [Concomitant]
     Dosage: UNK
     Dates: end: 20100622

REACTIONS (3)
  - BASAL CELL CARCINOMA [None]
  - MYALGIA [None]
  - PLATELET TRANSFUSION [None]
